FAERS Safety Report 8145395-0 (Version None)
Quarter: 2012Q1

REPORT INFORMATION
  Report Type: 
  Country: None (occurrence: None)
  Receive Date: 20120217
  Receipt Date: 20120209
  Transmission Date: 20120608
  Serious: Yes (Hospitalization, Disabling)
  Sender: FDA-Public Use
  Company Number: US-JNJFOC-20120206129

PATIENT
  Sex: Male
  Weight: 106 kg

DRUGS (2)
  1. MULTI-VITAMINS [Concomitant]
  2. REMICADE [Suspect]
     Indication: CROHN'S DISEASE
     Route: 042
     Dates: end: 20110722

REACTIONS (2)
  - AUTOIMMUNE HEPATITIS [None]
  - CROHN'S DISEASE [None]
